FAERS Safety Report 11601230 (Version 1)
Quarter: 2015Q4

REPORT INFORMATION
  Report Type: Spontaneous
  Country: US (occurrence: US)
  Receive Date: 20151006
  Receipt Date: 20151006
  Transmission Date: 20160304
  Serious: No
  Sender: FDA-Public Use
  Company Number: US-AMGEN-USASP2015017782

PATIENT
  Age: 75 Year
  Sex: Female

DRUGS (1)
  1. PROLIA [Suspect]
     Active Substance: DENOSUMAB
     Indication: OSTEOPENIA
     Dosage: UNK UNK, UNK
     Route: 065
     Dates: start: 20141214

REACTIONS (2)
  - Sleep disorder due to general medical condition, insomnia type [Not Recovered/Not Resolved]
  - Bone pain [Not Recovered/Not Resolved]
